FAERS Safety Report 24665589 (Version 4)
Quarter: 2025Q2

REPORT INFORMATION
  Report Type: Spontaneous
  Country: US (occurrence: US)
  Receive Date: 20241126
  Receipt Date: 20250611
  Transmission Date: 20250717
  Serious: Yes (Other)
  Sender: RADIUS PHARM
  Company Number: US-RADIUS HEALTH INC.-2024US009209

PATIENT
  Sex: Female

DRUGS (2)
  1. TYMLOS [Suspect]
     Active Substance: ABALOPARATIDE
     Indication: Senile osteoporosis
     Route: 058
     Dates: start: 20241120
  2. CALCIUM\VITAMIN D [Concomitant]
     Active Substance: CALCIUM\VITAMIN D
     Indication: Product used for unknown indication

REACTIONS (10)
  - Colitis ulcerative [Unknown]
  - Arthralgia [Not Recovered/Not Resolved]
  - Heart rate increased [Unknown]
  - Fatigue [Unknown]
  - Headache [Unknown]
  - Injection site reaction [Unknown]
  - Dizziness [Unknown]
  - Palpitations [Unknown]
  - Product administered at inappropriate site [Unknown]
  - Product dose omission issue [Unknown]
